FAERS Safety Report 5019947-0 (Version None)
Quarter: 2006Q2

REPORT INFORMATION
  Report Type: 
  Country: None (occurrence: None)
  Receive Date: 20060605
  Receipt Date: 20060605
  Transmission Date: 20061013
  Serious: Yes (Other)
  Sender: FDA-Public Use
  Company Number: None

PATIENT
  Age: 76 Year
  Sex: Female
  Weight: 81 kg

DRUGS (6)
  1. SORAFENIB [Suspect]
     Indication: RENAL CELL CARCINOMA STAGE UNSPECIFIED
  2. ATENOLOL [Concomitant]
  3. NORVASC [Concomitant]
  4. SYNTHROID [Concomitant]
  5. COZAAR [Concomitant]
  6. HYDROCHLOROTHIAZIDE AND TRIAMTERENE [Concomitant]

REACTIONS (3)
  - VISUAL DISTURBANCE [None]
  - VITREOUS FLOATERS [None]
  - VITREOUS HAEMORRHAGE [None]
